FAERS Safety Report 9286347 (Version 1)
Quarter: 2013Q2

REPORT INFORMATION
  Report Type: Spontaneous
  Country: US (occurrence: None)
  Receive Date: 20130510
  Receipt Date: 20130510
  Transmission Date: 20140414
  Serious: No
  Sender: FDA-Public Use
  Company Number: None

PATIENT
  Age: 63 Year
  Sex: Female
  Weight: 88.91 kg

DRUGS (1)
  1. ALPHAGAN [Suspect]
     Indication: INTRAOCULAR PRESSURE INCREASED
     Dosage: ONE DROP TWICE A DAY INTRAOCULAR
     Route: 031
     Dates: start: 20121110, end: 20130509

REACTIONS (2)
  - Vitreous detachment [None]
  - Visual acuity reduced [None]
